FAERS Safety Report 9422977 (Version 1)
Quarter: 2013Q3

REPORT INFORMATION
  Report Type: Report from Study
  Country: CA (occurrence: CA)
  Receive Date: 20130726
  Receipt Date: 20130726
  Transmission Date: 20140515
  Serious: Yes (Other)
  Sender: FDA-Public Use
  Company Number: CA-ROCHE-1252272

PATIENT
  Sex: Female
  Weight: 86.71 kg

DRUGS (6)
  1. PERJETA [Suspect]
     Indication: BREAST CANCER METASTATIC
     Route: 042
     Dates: start: 20130627
  2. HERCEPTIN [Suspect]
     Indication: BREAST CANCER METASTATIC
     Route: 065
  3. TAXOTERE [Suspect]
     Indication: BREAST CANCER METASTATIC
     Route: 065
  4. TRAMADOL [Concomitant]
     Dosage: 325/37.5 MG
     Route: 048
     Dates: start: 20130201
  5. CLONAZEPAM [Concomitant]
     Route: 048
     Dates: start: 20130501
  6. GABAPENTIN [Concomitant]
     Route: 048
     Dates: start: 20130201

REACTIONS (6)
  - Alopecia [Unknown]
  - Fatigue [Unknown]
  - Decreased appetite [Unknown]
  - Pain in extremity [Unknown]
  - Burning sensation [Unknown]
  - Paraesthesia [Unknown]
